FAERS Safety Report 5371233-5 (Version None)
Quarter: 2007Q2

REPORT INFORMATION
  Report Type: 
  Country: None (occurrence: None)
  Receive Date: 20070615
  Receipt Date: 20070306
  Transmission Date: 20071010
  Serious: Yes (Other)
  Sender: FDA-Public Use
  Company Number: 200710675US

PATIENT
  Age: 86 Year
  Sex: Female

DRUGS (4)
  1. LANTUS [Suspect]
     Indication: DIABETES MELLITUS NON-INSULIN-DEPENDENT
     Dosage: 37 U QAM
  2. GLYCERYL TRINITRATE (NITRO-BID) [Concomitant]
  3. ASPIRIN [Concomitant]
  4. STOMACH MEDICATION (NOS) [Concomitant]

REACTIONS (6)
  - AMNESIA [None]
  - APHASIA [None]
  - BLOOD GLUCOSE DECREASED [None]
  - HYPOGLYCAEMIC UNCONSCIOUSNESS [None]
  - VISION BLURRED [None]
  - VISUAL ACUITY REDUCED TRANSIENTLY [None]
